FAERS Safety Report 8072582-2 (Version None)
Quarter: 2012Q1

REPORT INFORMATION
  Report Type: 
  Country: None (occurrence: None)
  Receive Date: 20120123
  Receipt Date: 20120106
  Transmission Date: 20120608
  Serious: Yes (Hospitalization)
  Sender: FDA-Public Use
  Company Number: 2012P1001028

PATIENT
  Age: 21 Year
  Sex: Male
  Weight: 58.514 kg

DRUGS (5)
  1. SULFACETAMIDE SODIUM [Suspect]
     Indication: ACNE
     Dosage: QD, TOP
     Route: 061
     Dates: start: 20111213, end: 20120103
  2. SULFACETAMIDE SODIUM [Suspect]
     Indication: ACNE
     Dosage: QD, TOP
     Route: 061
     Dates: start: 20080101, end: 20111111
  3. MULTI  GNC VITAMIN [Concomitant]
  4. AMOXICILLIN [Concomitant]
  5. XYZAL [Concomitant]

REACTIONS (14)
  - PRURITUS [None]
  - LIP SWELLING [None]
  - HEPATIC ENZYME INCREASED [None]
  - SWOLLEN TONGUE [None]
  - MUSCLE TIGHTNESS [None]
  - HEADACHE [None]
  - SWELLING FACE [None]
  - EYE SWELLING [None]
  - PYREXIA [None]
  - CHEMICAL INJURY [None]
  - SINUSITIS [None]
  - ERYTHEMA [None]
  - CHEST DISCOMFORT [None]
  - BLOOD BILIRUBIN INCREASED [None]
